FAERS Safety Report 4714746-9 (Version None)
Quarter: 2005Q3

REPORT INFORMATION
  Report Type: 
  Country: None (occurrence: None)
  Receive Date: 20050713
  Receipt Date: 20050707
  Transmission Date: 20060218
  Serious: Yes (Other)
  Sender: FDA-Public Use
  Company Number: S05-USA-03438-01

PATIENT
  Age: 51 Year
  Sex: Male

DRUGS (6)
  1. LEXAPRO [Suspect]
     Indication: IRRITABILITY
  2. LEXAPRO [Suspect]
     Indication: IRRITABILITY
  3. PEG-INTRON [Suspect]
     Indication: HEPATITIS C
     Dates: start: 20050103
  4. RIBAVIRIN [Suspect]
     Indication: HEPATITIS C
     Dates: start: 20050103
  5. BUSPAR [Concomitant]
  6. PROTONIX [Concomitant]

REACTIONS (5)
  - CONVULSION [None]
  - FALL [None]
  - HYPERHIDROSIS [None]
  - LOSS OF CONSCIOUSNESS [None]
  - VOMITING [None]
